FAERS Safety Report 17040916 (Version 3)
Quarter: 2020Q1

REPORT INFORMATION
  Report Type: Report from Study
  Country: CA (occurrence: CA)
  Receive Date: 20191118
  Receipt Date: 20200112
  Transmission Date: 20200409
  Serious: Yes (Other)
  Sender: FDA-Public Use
  Company Number: CA-BEH-2019109469

PATIENT
  Age: 42 Year
  Sex: Male
  Weight: 73 kg

DRUGS (2)
  1. HIZENTRA [Suspect]
     Active Substance: HUMAN IMMUNOGLOBULIN G
     Indication: PRIMARY IMMUNODEFICIENCY SYNDROME
     Dosage: 16 GRAM, QOW
     Route: 058
     Dates: start: 20170929
  2. DILANTIN [Concomitant]
     Active Substance: PHENYTOIN

REACTIONS (5)
  - Respiratory tract infection [Recovering/Resolving]
  - Pulmonary congestion [Recovering/Resolving]
  - Nasopharyngitis [Not Recovered/Not Resolved]
  - Cough [Not Recovered/Not Resolved]
  - Nasal congestion [Recovering/Resolving]

NARRATIVE: CASE EVENT DATE: 20191109
